FAERS Safety Report 14389139 (Version 2)
Quarter: 2018Q4

REPORT INFORMATION
  Report Type: Spontaneous
  Country: US (occurrence: US)
  Receive Date: 20180115
  Receipt Date: 20181217
  Transmission Date: 20190204
  Serious: Yes (Other)
  Sender: FDA-Public Use
  Company Number: US-SA-2017SA235015

PATIENT
  Age: 67 Year
  Sex: Female
  Weight: 95 kg

DRUGS (5)
  1. BLOCADREN [Concomitant]
     Active Substance: TIMOLOL MALEATE
  2. TAXOTERE [Suspect]
     Active Substance: DOCETAXEL
     Indication: BREAST CANCER FEMALE
     Dosage: 150-157 MG
     Route: 042
     Dates: start: 20080806, end: 20080806
  3. NEOSAR [Concomitant]
     Active Substance: CYCLOPHOSPHAMIDE
  4. PREVACID [Concomitant]
     Active Substance: LANSOPRAZOLE
  5. TAXOTERE [Suspect]
     Active Substance: DOCETAXEL
     Dosage: 150-157 MG
     Route: 042
     Dates: start: 20080918, end: 20080918

REACTIONS (2)
  - Psychological trauma [Unknown]
  - Alopecia [Not Recovered/Not Resolved]

NARRATIVE: CASE EVENT DATE: 200808
